FAERS Safety Report 16712683 (Version 1)
Quarter: 2019Q3

REPORT INFORMATION
  Report Type: Spontaneous
  Country: GB (occurrence: GB)
  Receive Date: 20190816
  Receipt Date: 20190816
  Transmission Date: 20191004
  Serious: Yes (Other)
  Sender: FDA-Public Use
  Company Number: PHHY2019GB186493

PATIENT
  Age: 72 Year
  Sex: Male

DRUGS (1)
  1. ENTRESTO [Suspect]
     Active Substance: SACUBITRIL\VALSARTAN
     Indication: CARDIAC FAILURE
     Dosage: 2 DF, QD (49/51MG )
     Route: 048

REACTIONS (3)
  - Glare [Recovering/Resolving]
  - Cough [Recovering/Resolving]
  - Photophobia [Recovering/Resolving]
